FAERS Safety Report 14164769 (Version 1)
Quarter: 2017Q4

REPORT INFORMATION
  Report Type: Spontaneous
  Country: US (occurrence: US)
  Receive Date: 20171107
  Receipt Date: 20171107
  Transmission Date: 20180321
  Serious: No
  Sender: FDA-Public Use
  Company Number: US-LUPIN PHARMACEUTICALS INC.-2017-05398

PATIENT
  Age: 61 Year
  Sex: Male
  Weight: 77.98 kg

DRUGS (3)
  1. LISINOPRIL TABLETS USP, 20MG [Suspect]
     Active Substance: LISINOPRIL
     Dosage: 20 MG, QD (NEWLY REDUCED SIZE)
     Route: 048
     Dates: start: 20170829, end: 20170831
  2. LISINOPRIL TABLETS USP, 20MG [Suspect]
     Active Substance: LISINOPRIL
     Indication: HYPERTENSION
     Dosage: UNK (OLD SIZE)
     Route: 048
  3. LISINOPRIL TABLETS USP, 20MG [Suspect]
     Active Substance: LISINOPRIL
     Dosage: UNK (OLD SIZE)
     Route: 048
     Dates: start: 20170901, end: 20170902

REACTIONS (2)
  - Pollakiuria [Recovered/Resolved]
  - Muscle spasms [Recovered/Resolved]

NARRATIVE: CASE EVENT DATE: 20170829
